FAERS Safety Report 7394905-X (Version None)
Quarter: 2011Q2

REPORT INFORMATION
  Report Type: 
  Country: None (occurrence: None)
  Receive Date: 20110405
  Receipt Date: 20110328
  Transmission Date: 20111010
  Serious: Yes (Hospitalization)
  Sender: FDA-Public Use
  Company Number: B0708750A

PATIENT
  Sex: Female

DRUGS (3)
  1. DAFALGAN [Suspect]
     Dosage: 4UNIT PER DAY
     Route: 048
     Dates: start: 20110210, end: 20110218
  2. VIRAMUNE [Suspect]
     Indication: HIV INFECTION
     Dosage: 200MG TWICE PER DAY
     Route: 048
     Dates: start: 20110120, end: 20110218
  3. COMBIVIR [Suspect]
     Indication: HIV INFECTION
     Dosage: 150MG TWICE PER DAY
     Route: 048
     Dates: start: 20110120

REACTIONS (10)
  - INFLUENZA LIKE ILLNESS [None]
  - CHROMATURIA [None]
  - ABDOMINAL PAIN UPPER [None]
  - NAUSEA [None]
  - VOMITING [None]
  - CHILLS [None]
  - MUSCULOSKELETAL STIFFNESS [None]
  - PYREXIA [None]
  - CYTOLYTIC HEPATITIS [None]
  - OCULAR ICTERUS [None]
